FAERS Safety Report 18403249 (Version 1)
Quarter: 2020Q4

REPORT INFORMATION
  Report Type: Other
  Country: GB (occurrence: GB)
  Receive Date: 20201019
  Receipt Date: 20201019
  Transmission Date: 20210114
  Serious: Yes (Other)
  Sender: FDA-Public Use
  Company Number: GB-ROCHE-2695330

PATIENT

DRUGS (1)
  1. TOCILIZUMAB. [Suspect]
     Active Substance: TOCILIZUMAB
     Indication: GIANT CELL ARTERITIS
     Route: 065

REACTIONS (16)
  - Myocardial infarction [Unknown]
  - Pulmonary embolism [Unknown]
  - Herpes zoster [Unknown]
  - Urinary tract infection [Unknown]
  - Varicella [Unknown]
  - Headache [Unknown]
  - Hypersensitivity [Unknown]
  - Intestinal perforation [Unknown]
  - Neutropenia [Unknown]
  - Injection site reaction [Unknown]
  - Skin ulcer [Unknown]
  - Lower respiratory tract infection [Unknown]
  - Gastrointestinal carcinoma [Unknown]
  - Rash [Unknown]
  - Tooth abscess [Unknown]
  - Infection [Unknown]
